FAERS Safety Report 8612180-2 (Version None)
Quarter: 2012Q3

REPORT INFORMATION
  Report Type: 
  Country: None (occurrence: None)
  Receive Date: 20120822
  Receipt Date: 20120819
  Transmission Date: 20120928
  Serious: No
  Sender: FDA-Public Use
  Company Number: US-BAYER-2012-086028

PATIENT
  Age: 40 Year
  Sex: Female
  Weight: 56 kg

DRUGS (3)
  1. FLINTSTONES COMPLETE [Suspect]
     Dosage: 1 DF, QD
     Route: 048
     Dates: start: 20110201
  2. FLINTSTONES COMPLETE [Suspect]
     Dosage: 2 DF, UNK
  3. ASPIRIN [Concomitant]

REACTIONS (1)
  - NO ADVERSE EVENT [None]
